FAERS Safety Report 15363308 (Version 2)
Quarter: 2019Q1

REPORT INFORMATION
  Report Type: Spontaneous
  Country: RO (occurrence: RO)
  Receive Date: 20180907
  Receipt Date: 20190321
  Transmission Date: 20190417
  Serious: Yes (Death, Hospitalization)
  Sender: FDA-Public Use
  Company Number: RO-VALIDUS PHARMACEUTICALS LLC-RO-2018VAL000900

PATIENT

DRUGS (4)
  1. ERITROPOYETINA [Suspect]
     Active Substance: ERYTHROPOIETIN
     Indication: END STAGE RENAL DISEASE
     Dosage: 1000 ?L, Q3W (1000 ?L, 1 IN 3 WK)
     Route: 065
  2. FOLIC ACID. [Concomitant]
     Active Substance: FOLIC ACID
     Indication: END STAGE RENAL DISEASE
     Dosage: 5 MG, QD
     Route: 065
  3. CALCITRIOL. [Suspect]
     Active Substance: CALCITRIOL
     Indication: END STAGE RENAL DISEASE
     Dosage: 0.5 ?G, QD
     Route: 065
  4. CALCIUM CARBONATE. [Suspect]
     Active Substance: CALCIUM CARBONATE
     Indication: END STAGE RENAL DISEASE
     Dosage: 1000 MG, TID
     Route: 065

REACTIONS (7)
  - Calciphylaxis [Fatal]
  - Chronic kidney disease-mineral and bone disorder [Unknown]
  - Hypoxia [Unknown]
  - Hyperparathyroidism secondary [Unknown]
  - Pulmonary calcification [Fatal]
  - Cardio-respiratory arrest [Not Recovered/Not Resolved]
  - Seizure [Unknown]
